FAERS Safety Report 23021223 (Version 1)
Quarter: 2023Q4

REPORT INFORMATION
  Report Type: Report from Study
  Country: US (occurrence: US)
  Receive Date: 20231003
  Receipt Date: 20231003
  Transmission Date: 20240110
  Serious: Yes (Hospitalization)
  Sender: FDA-Public Use
  Company Number: US-JNJFOC-20230959282

PATIENT
  Sex: Male

DRUGS (1)
  1. MACITENTAN [Suspect]
     Active Substance: MACITENTAN
     Indication: Pulmonary arterial hypertension
     Route: 048
     Dates: start: 202302

REACTIONS (3)
  - Migraine [Recovered/Resolved]
  - Fatigue [Recovering/Resolving]
  - Haematological infection [Unknown]

NARRATIVE: CASE EVENT DATE: 20230701
